FAERS Safety Report 15290448 (Version 2)
Quarter: 2018Q4

REPORT INFORMATION
  Report Type: Spontaneous
  Country: US (occurrence: US)
  Receive Date: 20180817
  Receipt Date: 20181019
  Transmission Date: 20190204
  Serious: Yes (Other)
  Sender: FDA-Public Use
  Company Number: US-BAUSCH-BL-2018-021260

PATIENT
  Sex: Female

DRUGS (5)
  1. MURO 128 [Suspect]
     Active Substance: SODIUM CHLORIDE
     Dosage: ABOUT A MONTH PRIOR, USED IN BOTH EYES 3-4 TIMES A DAY.
     Route: 047
     Dates: start: 2018, end: 20180802
  2. MURO 128 [Suspect]
     Active Substance: SODIUM CHLORIDE
     Indication: CORNEAL DYSTROPHY
     Dosage: STARTED USING 40 YEARS AGO, USING IN BOTH EYES, DISCONTINUED ABOUT 3 YEARS PRIOR THE REPORTING TIME
     Route: 047
  3. MURO 128 [Suspect]
     Active Substance: SODIUM CHLORIDE
     Dosage: AFTER SURGERY USING IN ONLY LEFT EYE
     Route: 047
     Dates: start: 2017
  4. MURO 128 [Suspect]
     Active Substance: SODIUM CHLORIDE
     Indication: CORNEAL OEDEMA
     Dosage: RESTARTED IN BOTH EYES
     Route: 047
  5. MURO [Concomitant]
     Indication: PRODUCT USED FOR UNKNOWN INDICATION
     Dosage: STOPPED ABOUT A MONTH PRIOR THE REPORTING TIME
     Route: 065
     Dates: start: 2017, end: 2018

REACTIONS (6)
  - Eye injury [Recovered/Resolved]
  - Foreign body sensation in eyes [Recovered/Resolved]
  - Corneal transplant [Recovered/Resolved]
  - Pain [Recovered/Resolved]
  - Retinal tear [Not Recovered/Not Resolved]
  - Product deposit [Unknown]

NARRATIVE: CASE EVENT DATE: 201709
